FAERS Safety Report 19256296 (Version 2)
Quarter: 2021Q2

REPORT INFORMATION
  Report Type: Spontaneous
  Country: FR (occurrence: FR)
  Receive Date: 20210513
  Receipt Date: 20210624
  Transmission Date: 20210717
  Serious: Yes (Hospitalization, Other)
  Sender: FDA-Public Use
  Company Number: FR-JNJFOC-20210514223

PATIENT
  Age: 3 Decade
  Sex: Female

DRUGS (5)
  1. EPITOMAX [Suspect]
     Active Substance: TOPIRAMATE
     Dosage: DOSE DECREASED
     Route: 048
     Dates: start: 2018
  2. EPITOMAX [Suspect]
     Active Substance: TOPIRAMATE
     Indication: PRODUCT USED FOR UNKNOWN INDICATION
     Dosage: 25 MG 4 TIMES A DAY?2 IN THE MORNING AND 2 IN THE EVENING
     Route: 048
     Dates: start: 200912
  3. EPITOMAX [Suspect]
     Active Substance: TOPIRAMATE
     Dosage: DOSE INCREASED? 6 PER DAY (2 IN THE MORNING, 4 IN THE EVENING)
     Route: 048
     Dates: start: 202012
  4. MINIDRIL [Concomitant]
     Active Substance: ETHINYL ESTRADIOL\LEVONORGESTREL
     Route: 048
  5. EPITOMAX [Suspect]
     Active Substance: TOPIRAMATE
     Dosage: 4 PER DAY
     Route: 048

REACTIONS (7)
  - Seizure [Unknown]
  - Vomiting [Recovering/Resolving]
  - Fatigue [Recovering/Resolving]
  - Diarrhoea [Recovering/Resolving]
  - Nausea [Recovering/Resolving]
  - Dizziness [Recovering/Resolving]
  - Nervousness [Unknown]

NARRATIVE: CASE EVENT DATE: 2018
